FAERS Safety Report 12433433 (Version 2)
Quarter: 2016Q2

REPORT INFORMATION
  Report Type: Spontaneous
  Country: EE (occurrence: EE)
  Receive Date: 20160603
  Receipt Date: 20160621
  Transmission Date: 20160815
  Serious: Yes (Other)
  Sender: FDA-Public Use
  Company Number: PHHY2016EE075094

PATIENT
  Age: 53 Year
  Sex: Female

DRUGS (2)
  1. SANDOSTATIN LAR DEPOT [Suspect]
     Active Substance: OCTREOTIDE ACETATE
     Dosage: 30 MG, QMO EVERY 4FOUR WEEKS.
     Dates: start: 20130516
  2. SANDOSTATIN LAR DEPOT [Suspect]
     Active Substance: OCTREOTIDE ACETATE
     Indication: ACROMEGALY
     Dosage: 30 MG, 20+10 MG EVERY FOUR WEEK
     Route: 065
     Dates: start: 20080904

REACTIONS (4)
  - Injection site pain [Recovering/Resolving]
  - Lipodystrophy acquired [Not Recovered/Not Resolved]
  - Needle issue [Unknown]
  - Injection site extravasation [Recovering/Resolving]

NARRATIVE: CASE EVENT DATE: 2014
